FAERS Safety Report 4828648-0 (Version None)
Quarter: 2005Q4

REPORT INFORMATION
  Report Type: 
  Country: None (occurrence: None)
  Receive Date: 20051115
  Receipt Date: 20051111
  Transmission Date: 20060501
  Serious: Yes (Death, Hospitalization)
  Sender: FDA-Public Use
  Company Number: FR-ABBOTT-05P-056-0316999-01

PATIENT
  Sex: Male

DRUGS (10)
  1. RITONAVIR SOFT GELATIN CAPSULES [Suspect]
     Indication: HIV INFECTION
     Route: 048
     Dates: start: 20050420
  2. ABACAVIR SULFATE [Concomitant]
     Indication: HIV INFECTION
     Route: 048
     Dates: start: 20050420
  3. VIREAD [Concomitant]
     Indication: HIV INFECTION
     Route: 048
     Dates: start: 20050420
  4. FUZEON [Concomitant]
     Indication: HIV INFECTION
     Route: 058
     Dates: start: 20050420
  5. IZILOX [Concomitant]
     Indication: DRUG USE FOR UNKNOWN INDICATION
     Route: 048
     Dates: start: 20050316
  6. CLARITHROMYCIN [Concomitant]
     Indication: DRUG USE FOR UNKNOWN INDICATION
     Route: 048
     Dates: start: 20050316
  7. ETHAMBUTOL DIHYDROCHLORIDE [Concomitant]
     Indication: DRUG USE FOR UNKNOWN INDICATION
     Route: 048
     Dates: start: 20020415
  8. BACTRIM [Concomitant]
     Indication: DRUG USE FOR UNKNOWN INDICATION
     Route: 048
     Dates: start: 20020809
  9. MEPRONIZINE [Concomitant]
     Indication: DRUG USE FOR UNKNOWN INDICATION
     Dates: start: 20031021
  10. TIPRANAVIR [Concomitant]
     Indication: HIV INFECTION
     Route: 048
     Dates: start: 20050420

REACTIONS (13)
  - ABDOMINAL PAIN [None]
  - ANOREXIA [None]
  - ASTHENIA [None]
  - BRONCHIAL DISORDER [None]
  - CENTRAL-ALVEOLAR HYPOVENTILATION [None]
  - CHRONIC OBSTRUCTIVE PULMONARY DISEASE [None]
  - COUGH [None]
  - GENERAL PHYSICAL HEALTH DETERIORATION [None]
  - INFECTION [None]
  - MYALGIA [None]
  - OROPHARYNGEAL CANDIDIASIS [None]
  - PSEUDOMONAS INFECTION [None]
  - WEIGHT DECREASED [None]
